FAERS Safety Report 19366564 (Version 1)
Quarter: 2021Q2

REPORT INFORMATION
  Report Type: Spontaneous
  Country: JP (occurrence: JP)
  Receive Date: 20210603
  Receipt Date: 20210603
  Transmission Date: 20210717
  Serious: Yes (Other)
  Sender: FDA-Public Use
  Company Number: JP-SAKK-2021SA181122AA

PATIENT
  Age: 55 Year
  Sex: Male

DRUGS (1)
  1. DUPIXENT [Suspect]
     Active Substance: DUPILUMAB
     Indication: DERMATITIS ATOPIC
     Dosage: UNK
     Route: 058
     Dates: start: 2018

REACTIONS (8)
  - Arthralgia [Unknown]
  - Conjunctivitis [Unknown]
  - Asthma [Unknown]
  - Gait inability [Unknown]
  - Oral herpes [Unknown]
  - Chondrocalcinosis pyrophosphate [Unknown]
  - Cellulitis [Unknown]
  - Cough [Unknown]
